FAERS Safety Report 22269836 (Version 1)
Quarter: 2023Q2

REPORT INFORMATION
  Report Type: Spontaneous
  Country: RS (occurrence: RS)
  Receive Date: 20230501
  Receipt Date: 20230501
  Transmission Date: 20230721
  Serious: Yes (Other)
  Sender: FDA-Public Use
  Company Number: RS-JNJFOC-20230445039

PATIENT
  Age: 53 Year
  Sex: Male

DRUGS (5)
  1. VELCADE [Suspect]
     Active Substance: BORTEZOMIB
     Indication: Plasma cell myeloma
     Dosage: UNK
     Route: 065
  2. DEXAMETHASONE [Suspect]
     Active Substance: DEXAMETHASONE
     Indication: Plasma cell myeloma
     Dosage: UNK
     Route: 065
     Dates: start: 202010, end: 202104
  3. DEXAMETHASONE [Suspect]
     Active Substance: DEXAMETHASONE
     Dosage: UNK
     Route: 065
  4. THALIDOMIDE [Suspect]
     Active Substance: THALIDOMIDE
     Indication: Plasma cell myeloma
     Dosage: UNK
     Route: 065
     Dates: start: 202010, end: 202104
  5. THALIDOMIDE [Suspect]
     Active Substance: THALIDOMIDE
     Dosage: UNK
     Route: 065

REACTIONS (17)
  - Clostridium difficile colitis [Unknown]
  - Corynebacterium sepsis [Unknown]
  - Streptococcal sepsis [Unknown]
  - Beta 2 microglobulin increased [Recovering/Resolving]
  - Respiratory syncytial virus infection [Unknown]
  - Human metapneumovirus test positive [Unknown]
  - Proteinuria [Recovered/Resolved]
  - Light chain analysis abnormal [Unknown]
  - Light chain analysis decreased [Unknown]
  - Glomerular filtration rate decreased [Unknown]
  - Haemoglobin decreased [Unknown]
  - Blood immunoglobulin A decreased [Unknown]
  - Blood immunoglobulin M decreased [Unknown]
  - Blood immunoglobulin G decreased [Unknown]
  - Anaemia [Unknown]
  - Pyrexia [Unknown]
  - Platelet count decreased [Unknown]
